FAERS Safety Report 14870889 (Version 2)
Quarter: 2018Q2

REPORT INFORMATION
  Report Type: Spontaneous
  Country: GB (occurrence: GB)
  Receive Date: 20180509
  Receipt Date: 20180604
  Transmission Date: 20180711
  Serious: Yes (Death, Life-Threatening, Hospitalization, Other)
  Sender: FDA-Public Use
  Company Number: GB-PFIZER INC-2018185532

PATIENT
  Age: 72 Year
  Sex: Male
  Weight: 79.9 kg

DRUGS (2)
  1. WARFARIN [Interacting]
     Active Substance: WARFARIN
     Indication: ATRIAL FIBRILLATION
     Dosage: 1-2 MG, DAILY
     Route: 048
     Dates: end: 20180303
  2. GEMCITABINE HYDROCHLORIDE. [Suspect]
     Active Substance: GEMCITABINE HYDROCHLORIDE
     Indication: PANCREATIC CARCINOMA
     Dosage: 1862 MG, UNK
     Route: 042
     Dates: start: 20180227, end: 20180227

REACTIONS (3)
  - Duodenal ulcer haemorrhage [Fatal]
  - Drug interaction [Unknown]
  - International normalised ratio increased [Not Recovered/Not Resolved]
